FAERS Safety Report 8702215 (Version 2)
Quarter: 2012Q4

REPORT INFORMATION
  Report Type: Report from Study
  Country: FR (occurrence: FR)
  Receive Date: 20120803
  Receipt Date: 20121011
  Transmission Date: 20130627
  Serious: Yes (Hospitalization)
  Sender: FDA-Public Use
  Company Number: FR-CELGENEUS-056-21880-12072606

PATIENT
  Age: 55 Year
  Sex: Female

DRUGS (10)
  1. REVLIMID [Suspect]
     Indication: MULTIPLE MYELOMA
     Route: 048
     Dates: start: 20111114
  2. BORTEZOMIB [Suspect]
     Indication: MULTIPLE MYELOMA
     Route: 065
     Dates: start: 20111114
  3. DEXAMETHASONE [Suspect]
     Indication: MULTIPLE MYELOMA
     Route: 065
     Dates: start: 20111114
  4. BACTRIM FORTE [Concomitant]
     Indication: PROPHYLAXIS
     Dosage: 1 Capsule
     Route: 048
     Dates: start: 20111114
  5. LEDERFOLINE [Concomitant]
     Indication: PROPHYLAXIS
     Route: 048
     Dates: start: 20111114
  6. CLAMOXYL [Concomitant]
     Indication: PROPHYLAXIS
     Route: 048
     Dates: start: 20111114
  7. ZELITREX [Concomitant]
     Indication: PROPHYLAXIS
     Route: 048
     Dates: start: 20111114
  8. INNOHEP [Concomitant]
     Indication: PROPHYLAXIS
     Route: 058
     Dates: start: 20111114
  9. ATHYMIL [Concomitant]
     Indication: DRUG USE FOR UNKNOWN INDICATION
     Dosage: 200 Milligram
     Route: 065
  10. STILNOX [Concomitant]
     Indication: DRUG USE FOR UNKNOWN INDICATION
     Route: 065

REACTIONS (1)
  - Suicide attempt [Recovered/Resolved with Sequelae]
